FAERS Safety Report 7590144-8 (Version None)
Quarter: 2011Q3

REPORT INFORMATION
  Report Type: 
  Country: None (occurrence: None)
  Receive Date: 20110705
  Receipt Date: 20110627
  Transmission Date: 20111222
  Serious: Yes (Other)
  Sender: FDA-Public Use
  Company Number: B0730635A

PATIENT
  Sex: Male
  Weight: 90 kg

DRUGS (1)
  1. MALARONE [Suspect]
     Indication: MALARIA PROPHYLAXIS
     Dosage: 250MG PER DAY
     Route: 048
     Dates: start: 20110601, end: 20110610

REACTIONS (4)
  - NIGHTMARE [None]
  - ABDOMINAL DISTENSION [None]
  - DEPRESSED MOOD [None]
  - DIARRHOEA HAEMORRHAGIC [None]
